FAERS Safety Report 10277415 (Version 4)
Quarter: 2015Q1

REPORT INFORMATION
  Report Type: Spontaneous
  Country: US (occurrence: US)
  Receive Date: 20140703
  Receipt Date: 20150306
  Transmission Date: 20150720
  Serious: Yes (Life-Threatening, Hospitalization, Disabling, Other)
  Sender: FDA-Public Use
  Company Number: US-RB PHARMACEUTICALS LIMITED-RB-61015-2013

PATIENT
  Age: 60 Year
  Sex: Female

DRUGS (15)
  1. METHADONE [Suspect]
     Active Substance: METHADONE HYDROCHLORIDE
     Indication: PAIN MANAGEMENT
     Dosage: 120 MG, UNK
     Route: 065
  2. BENZODIAZEPINE DERIVATIVES [Suspect]
     Active Substance: BENZODIAZEPINE
     Indication: PRODUCT USED FOR UNKNOWN INDICATION
     Dosage: UNK
     Route: 065
  3. BENZODIAZEPINE DERIVATIVES [Suspect]
     Active Substance: BENZODIAZEPINE
     Dosage: 1 MG THRICE DAILY
     Route: 065
  4. VALIUM [Suspect]
     Active Substance: DIAZEPAM
     Indication: ANXIETY
  5. SUBOXONE [Suspect]
     Active Substance: BUPRENORPHINE HYDROCHLORIDE\NALOXONE HYDROCHLORIDE
     Dosage: UNK
     Route: 060
     Dates: end: 20150103
  6. VALIUM [Suspect]
     Active Substance: DIAZEPAM
     Indication: PANIC DISORDER
     Dosage: DOSING DETAILS UNKNOWN (AS NEEDED)
     Route: 048
     Dates: start: 1982
  7. METHADONE [Suspect]
     Active Substance: METHADONE HYDROCHLORIDE
     Dosage: 35 MG, UNK
     Route: 065
  8. XANAX [Concomitant]
     Active Substance: ALPRAZOLAM
     Indication: DEPRESSION
     Dosage: UNK
     Route: 065
  9. SUBOXONE [Suspect]
     Active Substance: BUPRENORPHINE HYDROCHLORIDE\NALOXONE HYDROCHLORIDE
     Dosage: SUBOXONE FILM; SELF TAPERING
     Route: 060
     Dates: start: 20131117
  10. CLONIDINE. [Suspect]
     Active Substance: CLONIDINE
     Indication: PRODUCT USED FOR UNKNOWN INDICATION
     Dosage: UNK
     Route: 065
     Dates: start: 201301
  11. PROAIR HFA [Concomitant]
     Active Substance: ALBUTEROL SULFATE
     Indication: DYSPNOEA
     Dosage: UNK
  12. SUBOXONE [Suspect]
     Active Substance: BUPRENORPHINE HYDROCHLORIDE\NALOXONE HYDROCHLORIDE
     Indication: DRUG DEPENDENCE
     Dosage: SUBOXONE FILM
     Route: 060
     Dates: start: 20130228, end: 201310
  13. SUBOXONE [Suspect]
     Active Substance: BUPRENORPHINE HYDROCHLORIDE\NALOXONE HYDROCHLORIDE
     Indication: PAIN
     Dosage: SUBOXONE FILM; DOSING DETAILS UNKNOWN
     Route: 060
     Dates: start: 201310, end: 20131116
  14. LOPRESSOR [Suspect]
     Active Substance: METOPROLOL TARTRATE
     Indication: PRODUCT USED FOR UNKNOWN INDICATION
     Dosage: UNK
     Route: 065
     Dates: start: 201301
  15. VIIBRYD [Concomitant]
     Active Substance: VILAZODONE HYDROCHLORIDE
     Indication: DEPRESSION
     Dosage: DOSING DETAILS UNKNOWN
     Route: 048

REACTIONS (42)
  - Uterine mass [Recovered/Resolved]
  - Diabetes mellitus [Not Recovered/Not Resolved]
  - Hepatic failure [Unknown]
  - Cardiac disorder [Unknown]
  - Depression [Not Recovered/Not Resolved]
  - Obstructive airways disorder [Recovered/Resolved]
  - Splenic cyst [Not Recovered/Not Resolved]
  - Pancreatic cyst [Unknown]
  - Post-traumatic stress disorder [Not Recovered/Not Resolved]
  - Pulmonary mass [Unknown]
  - Loss of consciousness [Recovered/Resolved]
  - Vitamin D increased [Unknown]
  - Lung disorder [Unknown]
  - Oral candidiasis [Recovered/Resolved]
  - Renal disorder [Not Recovered/Not Resolved]
  - Pancreatitis chronic [Unknown]
  - Wrong technique in drug usage process [Recovered/Resolved]
  - Overdose [Recovered/Resolved]
  - Abasia [Unknown]
  - Thyroid hormones increased [Unknown]
  - Hypertension [Recovered/Resolved]
  - Pain [Unknown]
  - Substance abuse [Recovered/Resolved]
  - Intentional underdose [Recovered/Resolved]
  - Seizure [Recovered/Resolved]
  - Cholelithiasis [Unknown]
  - Pneumonia [Unknown]
  - Renal mass [Not Recovered/Not Resolved]
  - Asthma [Not Recovered/Not Resolved]
  - Dyspnoea [Recovered/Resolved]
  - Drug withdrawal syndrome [Unknown]
  - Respiratory rate increased [Unknown]
  - Renal cyst [Unknown]
  - Dysphagia [Recovered/Resolved]
  - Angina pectoris [Unknown]
  - Feeling abnormal [Unknown]
  - Palpitations [Unknown]
  - Suicide attempt [Recovered/Resolved]
  - Hepatic cirrhosis [Not Recovered/Not Resolved]
  - Condition aggravated [Not Recovered/Not Resolved]
  - Adrenal adenoma [Unknown]
  - Unevaluable event [Recovered/Resolved]

NARRATIVE: CASE EVENT DATE: 2013
